FAERS Safety Report 10032940 (Version 2)
Quarter: 2014Q2

REPORT INFORMATION
  Report Type: Spontaneous
  Country: US (occurrence: US)
  Receive Date: 20140324
  Receipt Date: 20140428
  Transmission Date: 20141212
  Serious: Yes (Other)
  Sender: FDA-Public Use
  Company Number: US-PFIZER INC-2014081993

PATIENT
  Age: 70 Year
  Sex: Female
  Weight: 53.97 kg

DRUGS (2)
  1. PREMARIN [Suspect]
     Indication: HORMONE REPLACEMENT THERAPY
     Dosage: 0.25 G, MONTHLY
     Route: 067
     Dates: start: 2000
  2. SYNTHROID [Concomitant]
     Indication: THYROID DISORDER
     Dosage: 175 UG, 1X/DAY

REACTIONS (1)
  - Lung neoplasm malignant [Not Recovered/Not Resolved]
